FAERS Safety Report 10463067 (Version 3)
Quarter: 2014Q4

REPORT INFORMATION
  Report Type: Spontaneous
  Country: US (occurrence: US)
  Receive Date: 20140919
  Receipt Date: 20141024
  Transmission Date: 20150528
  Serious: Yes (Other)
  Sender: FDA-Public Use
  Company Number: US-PFIZER INC-2014257007

PATIENT
  Sex: Male

DRUGS (2)
  1. GLIPIZIDE ER [Suspect]
     Active Substance: GLIPIZIDE
     Dosage: UNK
  2. GLIPIZIDE XL [Suspect]
     Active Substance: GLIPIZIDE
     Dosage: UNK

REACTIONS (7)
  - Coagulopathy [Unknown]
  - Abnormal clotting factor [Unknown]
  - Limb injury [Unknown]
  - Head injury [Unknown]
  - Skin lesion [Unknown]
  - Impaired healing [Unknown]
  - Wound [Unknown]
